FAERS Safety Report 15862872 (Version 1)
Quarter: 2019Q1

REPORT INFORMATION
  Report Type: Spontaneous
  Country: FR (occurrence: FR)
  Receive Date: 20190124
  Receipt Date: 20190124
  Transmission Date: 20190417
  Serious: Yes (Hospitalization)
  Sender: FDA-Public Use
  Company Number: FR-009507513-1901FRA006517

PATIENT
  Age: 80 Year
  Sex: Male

DRUGS (8)
  1. EZETIMIBE. [Suspect]
     Active Substance: EZETIMIBE
     Indication: PRODUCT USED FOR UNKNOWN INDICATION
     Dosage: 10 MILLIGRAM, QD
     Route: 048
  2. PRAVASTATIN SODIUM. [Interacting]
     Active Substance: PRAVASTATIN SODIUM
     Indication: PRODUCT USED FOR UNKNOWN INDICATION
     Dosage: 20 MILLIGRAM, QD
     Route: 048
  3. RISPERDAL [Concomitant]
     Active Substance: RISPERIDONE
     Dosage: UNK
  4. PREVISCAN (FLUINDIONE) [Interacting]
     Active Substance: FLUINDIONE
     Indication: CEREBROVASCULAR ACCIDENT
     Dosage: 0.75 1 DAY AND 0.5 THE NEXT DAY
     Route: 048
     Dates: end: 20181206
  5. MACROGOL [Concomitant]
     Active Substance: POLYETHYLENE GLYCOLS
     Dosage: STRENGTH: 1000 (UNIT UNKNOWN)
  6. ALPRAZOLAM. [Concomitant]
     Active Substance: ALPRAZOLAM
     Dosage: UNK
  7. AMLODIPINE [Concomitant]
     Active Substance: AMLODIPINE BESYLATE
     Dosage: UNK
  8. NORMACOL [Concomitant]
     Active Substance: HERBALS\KARAYA GUM
     Dosage: UNK

REACTIONS (2)
  - International normalised ratio increased [Not Recovered/Not Resolved]
  - Haematuria [Unknown]

NARRATIVE: CASE EVENT DATE: 20181206
